FAERS Safety Report 19871217 (Version 1)
Quarter: 2021Q3

REPORT INFORMATION
  Report Type: Spontaneous
  Country: US (occurrence: US)
  Receive Date: 20210922
  Receipt Date: 20210922
  Transmission Date: 20211014
  Serious: Yes (Other)
  Sender: FDA-Public Use
  Company Number: None

PATIENT
  Age: 12 Year
  Sex: Male
  Weight: 46.8 kg

DRUGS (8)
  1. ALBUTEROL HFA [Concomitant]
     Active Substance: ALBUTEROL SULFATE
     Dates: start: 20170101
  2. LEVOCETIRIZINE 5MG [Concomitant]
     Active Substance: LEVOCETIRIZINE
     Dates: start: 20210722
  3. FEXOFENADINE 180MG [Concomitant]
     Active Substance: FEXOFENADINE HYDROCHLORIDE
     Dates: start: 20170101
  4. HYDROXYZINE 10MG [Concomitant]
     Dates: start: 20170101
  5. QNASL 40MCG [Concomitant]
     Dates: start: 20171031
  6. XOLAIR [Suspect]
     Active Substance: OMALIZUMAB
     Indication: ASTHMA
     Dosage: ?          OTHER FREQUENCY:EVERY 4 WEEKS;?
     Route: 058
     Dates: start: 20171207, end: 20210917
  7. SYMBICORT 80?4.5MGC [Concomitant]
     Dates: start: 20190524
  8. OLOPATADINE 0.2% [Concomitant]
     Dates: start: 20190726

REACTIONS (8)
  - Anxiety [None]
  - Malaise [None]
  - Pruritus [None]
  - Crying [None]
  - Flushing [None]
  - Speech disorder [None]
  - Dysphagia [None]
  - Drug ineffective [None]

NARRATIVE: CASE EVENT DATE: 20210917
